FAERS Safety Report 8558139-5 (Version None)
Quarter: 2012Q3

REPORT INFORMATION
  Report Type: 
  Country: None (occurrence: None)
  Receive Date: 20120801
  Receipt Date: 20120720
  Transmission Date: 20120928
  Serious: Yes (Death, Hospitalization, Disabling, Other)
  Sender: FDA-Public Use
  Company Number: US-009507513-1205USA02855

PATIENT

DRUGS (8)
  1. CALCIUM CARBONATE [Concomitant]
     Dosage: UNK
     Dates: start: 20011001, end: 20040901
  2. IBUPROFEN [Concomitant]
     Indication: ARTHRALGIA
     Dosage: 400 MG, BID
  3. LISINOPRIL [Concomitant]
     Indication: HYPERTENSION
     Dosage: 5 MG, QOD
     Route: 048
  4. FOSAMAX [Suspect]
     Indication: OSTEOPOROSIS
     Dosage: 70 MG, QW
     Route: 048
     Dates: start: 20001001, end: 20071205
  5. ERGOCALCIFEROL [Concomitant]
     Indication: OSTEOPOROSIS
     Dosage: 50000 IU, BIW
     Route: 048
     Dates: start: 20011001, end: 20071201
  6. SODIUM CHLORIDE [Concomitant]
     Indication: HYPERSENSITIVITY
     Dosage: UNK
     Dates: start: 20001201, end: 20040201
  7. FOSAMAX [Suspect]
     Dosage: 70 MG, QW
     Route: 048
     Dates: start: 20011029, end: 20071026
  8. HYDROCHLOROTHIAZIDE [Concomitant]
     Indication: HYPERTENSION
     Dosage: 25 MG, TIW

REACTIONS (34)
  - FEMUR FRACTURE [None]
  - DEAFNESS UNILATERAL [None]
  - HYPERCHOLESTEROLAEMIA [None]
  - EMPHYSEMA [None]
  - SPINAL OSTEOARTHRITIS [None]
  - OEDEMA PERIPHERAL [None]
  - BUNION OPERATION [None]
  - COMPRESSION FRACTURE [None]
  - NEUROPATHY PERIPHERAL [None]
  - ONYCHOMYCOSIS [None]
  - INFECTION [None]
  - PAIN IN EXTREMITY [None]
  - NAUSEA [None]
  - SEBORRHOEIC KERATOSIS [None]
  - OSTEOARTHRITIS [None]
  - CATARACT [None]
  - TINNITUS [None]
  - COLON CANCER METASTATIC [None]
  - OSTEOPOROSIS [None]
  - DEAFNESS [None]
  - MUSCULAR WEAKNESS [None]
  - PHARYNGEAL DISORDER [None]
  - STRESS FRACTURE [None]
  - LOW TURNOVER OSTEOPATHY [None]
  - PAIN [None]
  - BENIGN PROSTATIC HYPERPLASIA [None]
  - TOOTH DISORDER [None]
  - ARTHRALGIA [None]
  - VOMITING [None]
  - CATARACT OPERATION [None]
  - CHRONIC OBSTRUCTIVE PULMONARY DISEASE [None]
  - FUNGAL INFECTION [None]
  - AGE-RELATED MACULAR DEGENERATION [None]
  - FOOT DEFORMITY [None]
